FAERS Safety Report 6179465-3 (Version None)
Quarter: 2009Q2

REPORT INFORMATION
  Report Type: 
  Country: None (occurrence: None)
  Receive Date: 20090501
  Receipt Date: 20090501
  Transmission Date: 20091009
  Serious: Yes (Other)
  Sender: FDA-Public Use
  Company Number: None

PATIENT
  Age: 29 Year
  Sex: Male
  Weight: 93.441 kg

DRUGS (2)
  1. DAYTRANA [Suspect]
     Indication: ATTENTION DEFICIT/HYPERACTIVITY DISORDER
     Dosage: 1 TIME A DAY
     Dates: start: 20090201, end: 20090430
  2. SOMASLIM PM FORMULA 2 CAPSULES ONCE AT NIGHT GD LABS [Suspect]
     Indication: WEIGHT CONTROL
     Dates: start: 20090201, end: 20090427

REACTIONS (4)
  - AGITATION [None]
  - ARTHRALGIA [None]
  - DEPRESSION [None]
  - SOMNOLENCE [None]
